FAERS Safety Report 6789185-X (Version None)
Quarter: 2010Q2

REPORT INFORMATION
  Report Type: 
  Country: None (occurrence: None)
  Receive Date: 20100623
  Receipt Date: 20080922
  Transmission Date: 20101027
  Serious: Yes (Hospitalization, Other)
  Sender: FDA-Public Use
  Company Number: US-PFIZER INC-2008054570

PATIENT
  Sex: Female
  Weight: 62.1 kg

DRUGS (2)
  1. GEODON [Suspect]
     Indication: SCHIZOPHRENIA
     Route: 048
     Dates: start: 20080625, end: 20080626
  2. GEODON [Suspect]
     Indication: BIPOLAR DISORDER

REACTIONS (3)
  - ANXIETY [None]
  - DYSTONIA [None]
  - SWOLLEN TONGUE [None]
